FAERS Safety Report 5595967-2 (Version None)
Quarter: 2008Q1

REPORT INFORMATION
  Report Type: 
  Country: None (occurrence: None)
  Receive Date: 20080118
  Receipt Date: 20080111
  Transmission Date: 20080703
  Serious: Yes (Hospitalization, Disabling)
  Sender: FDA-Public Use
  Company Number: FR-ABBOTT-04P-056-0265347-00

PATIENT
  Sex: Male
  Weight: 82 kg

DRUGS (8)
  1. HUMIRA [Suspect]
     Indication: RHEUMATOID ARTHRITIS
     Route: 058
     Dates: start: 20040409, end: 20040628
  2. METHOTREXATE [Concomitant]
     Indication: RHEUMATOID ARTHRITIS
     Dates: start: 20021223, end: 20040628
  3. FOLIC ACID [Concomitant]
     Indication: RHEUMATOID ARTHRITIS
     Dates: start: 20021223, end: 20040628
  4. PREDNISONE [Concomitant]
     Indication: RHEUMATOID ARTHRITIS
     Dates: start: 20020701
  5. SOTALOL HYDROCHLORIDE [Concomitant]
     Indication: ANGINA PECTORIS
     Dates: start: 19990101
  6. CLONAZEPAM [Concomitant]
     Indication: PARAESTHESIA
     Dates: start: 20030601
  7. COMMERCIAL HUMIRA [Concomitant]
     Indication: RHEUMATOID ARTHRITIS
     Route: 050
     Dates: start: 20031009
  8. ACETYLSALICYLATE LYSINE [Concomitant]
     Indication: THROMBOSIS PROPHYLAXIS

REACTIONS (2)
  - ORCHITIS [None]
  - PROSTATITIS [None]
